FAERS Safety Report 5842421-6 (Version None)
Quarter: 2008Q3

REPORT INFORMATION
  Report Type: 
  Country: None (occurrence: None)
  Receive Date: 20080812
  Receipt Date: 20080804
  Transmission Date: 20090109
  Serious: Yes (Other)
  Sender: FDA-Public Use
  Company Number: US-GILEAD-2008-0016578

PATIENT
  Sex: Female
  Weight: 79.45 kg

DRUGS (13)
  1. LETAIRIS [Suspect]
     Indication: PULMONARY ARTERIAL HYPERTENSION
     Route: 048
     Dates: start: 20080328, end: 20080601
  2. OXYGEN [Concomitant]
     Route: 055
  3. VENTAVIS [Concomitant]
  4. LEVALBUTEROL POWDER [Concomitant]
     Route: 048
  5. SYNTHROID [Concomitant]
     Route: 048
  6. ARIMIDEX [Concomitant]
     Route: 048
  7. PROZAC [Concomitant]
     Route: 048
  8. DARVOCET [Concomitant]
     Route: 048
  9. VICODIN [Concomitant]
     Dosage: 5/100
     Route: 048
  10. ZANTAC [Concomitant]
     Route: 048
  11. FERROUS SULFATE TAB [Concomitant]
     Route: 048
  12. FLAX SEED OIL [Concomitant]
     Route: 048
  13. OMEGA [Concomitant]
     Route: 048

REACTIONS (3)
  - CONSTIPATION [None]
  - HAEMOGLOBIN DECREASED [None]
  - SWELLING [None]
